FAERS Safety Report 16281596 (Version 5)
Quarter: 2020Q2

REPORT INFORMATION
  Report Type: Report from Study
  Country: None (occurrence: FR)
  Receive Date: 20190507
  Receipt Date: 20200415
  Transmission Date: 20200713
  Serious: Yes (Hospitalization)
  Sender: FDA-Public Use
  Company Number: FR-ABBVIE-19K-056-2767768-00

PATIENT
  Age: 49 Year
  Sex: Male
  Weight: 89 kg

DRUGS (12)
  1. HYDROCORTISONE. [Concomitant]
     Active Substance: HYDROCORTISONE
     Indication: GASTROINTESTINAL DISORDER
     Route: 048
     Dates: start: 20190220, end: 20190515
  2. HYDROCORTISONE. [Concomitant]
     Active Substance: HYDROCORTISONE
     Indication: COLITIS ULCERATIVE
  3. HUMIRA [Suspect]
     Active Substance: ADALIMUMAB
     Indication: COLITIS ULCERATIVE
     Route: 058
     Dates: start: 20190111, end: 20190111
  4. IMUREL [Concomitant]
     Active Substance: AZATHIOPRINE SODIUM
     Indication: COLITIS ULCERATIVE
  5. BIPRETERAX [Concomitant]
     Active Substance: INDAPAMIDE\PERINDOPRIL
     Indication: HYPERTENSION
     Route: 048
     Dates: start: 20160101
  6. IMUREL [Concomitant]
     Active Substance: AZATHIOPRINE SODIUM
     Indication: GASTROINTESTINAL DISORDER
     Route: 048
     Dates: start: 19980101, end: 20190515
  7. HUMIRA [Suspect]
     Active Substance: ADALIMUMAB
     Route: 058
     Dates: start: 2019, end: 201904
  8. HUMIRA [Suspect]
     Active Substance: ADALIMUMAB
     Dosage: 15 DAYS AFTER THE FIRST DOSE
     Route: 058
     Dates: start: 201901, end: 201901
  9. TARDYFERON [Concomitant]
     Active Substance: FERROUS SULFATE
     Indication: IRON DEFICIENCY
     Route: 048
     Dates: start: 20190704, end: 20200101
  10. PENTASA [Concomitant]
     Active Substance: MESALAMINE
     Indication: GASTROINTESTINAL DISORDER
     Route: 048
     Dates: start: 19920101
  11. HUMIRA [Suspect]
     Active Substance: ADALIMUMAB
     Route: 058
     Dates: start: 201904
  12. SOLUPRED [Concomitant]
     Indication: GASTROINTESTINAL DISORDER
     Route: 048
     Dates: start: 20190111, end: 20190220

REACTIONS (7)
  - Tonsillitis [Recovered/Resolved]
  - Colitis [Recovered/Resolved]
  - Arthralgia [Recovering/Resolving]
  - Anaemia [Unknown]
  - Skin lesion [Recovered/Resolved]
  - Colitis ulcerative [Recovered/Resolved]
  - Gastroenteritis [Unknown]

NARRATIVE: CASE EVENT DATE: 20190117
